FAERS Safety Report 7297627-9 (Version None)
Quarter: 2011Q1

REPORT INFORMATION
  Report Type: 
  Country: None (occurrence: None)
  Receive Date: 20110216
  Receipt Date: 20110208
  Transmission Date: 20110831
  Serious: Yes (Death, Other)
  Sender: FDA-Public Use
  Company Number: FR-RB-022143-11

PATIENT
  Age: 30 Year
  Sex: Female

DRUGS (5)
  1. CANNABIS [Suspect]
     Indication: PRODUCT USED FOR UNKNOWN INDICATION
  2. SUBUTEX [Suspect]
     Indication: PRODUCT USED FOR UNKNOWN INDICATION
     Dosage: DOSED WITH 1/2 TABLET
     Route: 065
  3. ROHYPNOL [Suspect]
     Indication: PRODUCT USED FOR UNKNOWN INDICATION
     Dosage: DOSING DETAILS UNKNOWN
     Route: 065
  4. BROMAZEPAM [Suspect]
     Indication: DEPRESSION
     Dosage: DOSING DETAILS UNKNOWN
     Route: 065
  5. PAROXETINE [Suspect]
     Indication: DEPRESSION
     Dosage: DOSING DETAILS UNKNOWN
     Route: 065

REACTIONS (2)
  - SUICIDAL IDEATION [None]
  - COMPLETED SUICIDE [None]
